FAERS Safety Report 21630364 (Version 1)
Quarter: 2022Q4

REPORT INFORMATION
  Report Type: Spontaneous
  Country: US (occurrence: US)
  Receive Date: 20221122
  Receipt Date: 20221122
  Transmission Date: 20230113
  Serious: Yes (Death, Other)
  Sender: FDA-Public Use
  Company Number: US-BRISTOL-MYERS SQUIBB COMPANY-2022-140750

PATIENT
  Age: 67 Year
  Sex: Male

DRUGS (15)
  1. ELIQUIS [Suspect]
     Active Substance: APIXABAN
     Indication: Product used for unknown indication
     Dosage: DOSE: 5 MG; FREQ: TWICE A DAY.
     Route: 048
  2. ASPIRIN [Concomitant]
     Active Substance: ASPIRIN
  3. ROSUVASTATIN [Concomitant]
     Active Substance: ROSUVASTATIN
  4. CARVEDILOL [Concomitant]
     Active Substance: CARVEDILOL
  5. ISOSORBIDE MONONITRATE [Concomitant]
     Active Substance: ISOSORBIDE MONONITRATE
  6. FUROSEMIDE [Concomitant]
     Active Substance: FUROSEMIDE
  7. NITROGLYCERIN [Concomitant]
     Active Substance: NITROGLYCERIN
  8. BACLOFEN [Concomitant]
     Active Substance: BACLOFEN
  9. TRAMADOL [Concomitant]
     Active Substance: TRAMADOL
  10. GABAPENTIN [Concomitant]
     Active Substance: GABAPENTIN
  11. DIGOXIN [Concomitant]
     Active Substance: DIGOXIN
  12. TEMAZEPAM [Concomitant]
     Active Substance: TEMAZEPAM
  13. TAMSULOSIN [Concomitant]
     Active Substance: TAMSULOSIN
  14. ENTRESTO [Concomitant]
     Active Substance: SACUBITRIL\VALSARTAN
  15. AZELASTINE HYDROCHLORIDE [Concomitant]
     Active Substance: AZELASTINE HYDROCHLORIDE

REACTIONS (1)
  - Acute kidney injury [Fatal]

NARRATIVE: CASE EVENT DATE: 20220625
